FAERS Safety Report 10009821 (Version 2)
Quarter: 2014Q1

REPORT INFORMATION
  Report Type: Spontaneous
  Country: US (occurrence: US)
  Receive Date: 20140312
  Receipt Date: 20140312
  Transmission Date: 20141002
  Serious: Yes (Other)
  Sender: FDA-Public Use
  Company Number: US-INCYTE CORPORATION-2012IN002590

PATIENT
  Age: 69 Year
  Sex: Male
  Weight: 61.68 kg

DRUGS (10)
  1. JAKAFI [Suspect]
     Indication: MYELOFIBROSIS
     Dosage: 10 MG, BID
     Route: 048
     Dates: start: 20121210, end: 20121224
  2. JAKAFI [Suspect]
     Dosage: 5 MG, BID
     Route: 048
     Dates: start: 20130109
  3. JAKAFI [Suspect]
     Dosage: 10 MG, QD
     Route: 048
     Dates: start: 20130114, end: 20130121
  4. DEXILANT [Concomitant]
     Dosage: 60 MG, QD
  5. AMBIEN [Concomitant]
     Dosage: 10 MG, HS
  6. PLAVIX [Concomitant]
     Dosage: 75 MG, QD
  7. OXYCONTIN [Concomitant]
     Indication: PAIN
     Dosage: 40 MG, TID
  8. PERCOCET [Concomitant]
     Indication: BREAKTHROUGH PAIN
     Dosage: 5 MG, PRN
  9. SIMVASTATIN [Concomitant]
     Dosage: 40 MG, HS
  10. DANAZOL [Concomitant]

REACTIONS (13)
  - Anaemia [Not Recovered/Not Resolved]
  - Thrombocytopenia [Not Recovered/Not Resolved]
  - Splenomegaly [Not Recovered/Not Resolved]
  - Abdominal discomfort [Recovered/Resolved]
  - Palpitations [Recovered/Resolved]
  - Gingival pain [Unknown]
  - Fatigue [Unknown]
  - Oedema peripheral [Unknown]
  - Paraesthesia [Unknown]
  - Confusional state [Unknown]
  - Feeling abnormal [Unknown]
  - Asthenia [Not Recovered/Not Resolved]
  - Nervousness [Not Recovered/Not Resolved]
